FAERS Safety Report 4952357-0 (Version None)
Quarter: 2006Q1

REPORT INFORMATION
  Report Type: 
  Country: None (occurrence: None)
  Receive Date: 20060323
  Receipt Date: 20060116
  Transmission Date: 20060701
  Serious: Yes (Hospitalization, Other)
  Sender: FDA-Public Use
  Company Number: JP-BOEHRINGER INGELHEIM PHARMACEUTICALS, INC.-2006-BP-00997YA

PATIENT
  Sex: Male

DRUGS (17)
  1. HARNAL D (TAMSULOSIN HYDROCHLORIDE) [Suspect]
     Indication: BENIGN PROSTATIC HYPERPLASIA
     Route: 048
     Dates: start: 20050921, end: 20051012
  2. HARNAL D (TAMSULOSIN HYDROCHLORIDE) [Suspect]
     Indication: DYSURIA
  3. TOLEDOMIN [Suspect]
     Indication: DEPRESSION
     Route: 048
     Dates: start: 20050926, end: 20051012
  4. LIMAS [Concomitant]
     Indication: IMPATIENCE
     Dates: start: 20050916, end: 20051012
  5. LIMAS [Concomitant]
     Indication: DELIRIUM
  6. LANDSEN [Concomitant]
     Indication: DEPRESSION
     Dates: start: 20050916
  7. FLUVOXAMINE MALEATE [Concomitant]
     Dates: start: 20050916, end: 20050926
  8. GASMOTIN [Concomitant]
     Indication: ORTHOSTATIC HYPOTENSION
     Dates: start: 20050916, end: 20051017
  9. METLIGINE [Concomitant]
     Indication: MYOCARDIAL INFARCTION
     Dates: start: 20050916
  10. SIGMART [Concomitant]
     Indication: HEPATIC FUNCTION ABNORMAL
     Dates: start: 20050916, end: 20051017
  11. URSO [Concomitant]
     Indication: MYOCARDIAL INFARCTION
     Dates: start: 20050916, end: 20051017
  12. BASEN [Concomitant]
     Indication: MYOCARDIAL INFARCTION
     Dates: start: 20050916, end: 20051017
  13. ASPIRIN [Concomitant]
     Indication: BENIGN PROSTATIC HYPERPLASIA
     Dates: start: 20050916, end: 20051017
  14. FLIVAS [Concomitant]
     Indication: INSOMNIA
     Dates: start: 20050919, end: 20050920
  15. LENDORMIN [Concomitant]
     Indication: BENIGN PROSTATIC HYPERPLASIA
     Dates: start: 20050916, end: 20051006
  16. MYSLEE [Concomitant]
     Indication: INSOMNIA
     Dates: start: 20051007, end: 20051011
  17. ETILEFRINE HYDROCHLORIDE [Concomitant]
     Indication: DEPRESSION

REACTIONS (3)
  - DELIRIUM [None]
  - ORTHOSTATIC HYPOTENSION [None]
  - SUBDURAL HYGROMA [None]
